FAERS Safety Report 8721349 (Version 3)
Quarter: 2012Q4

REPORT INFORMATION
  Report Type: Spontaneous
  Country: DE (occurrence: None)
  Receive Date: 20120726
  Receipt Date: 20121023
  Transmission Date: 20130627
  Serious: No
  Sender: FDA-Public Use
  Company Number: 1207DEU007012

PATIENT
  Age: 2 Year
  Sex: Male

DRUGS (3)
  1. CEFTIBUTEN [Suspect]
     Indication: URINARY TRACT INFECTION
     Route: 048
     Dates: start: 20120508, end: 20120715
  2. OXYBUTYNIN CHLORIDE (OXYBUTYNIN CHLORIDE) [Concomitant]
  3. HOMEOPATHIC MEDICATIONS [Concomitant]

REACTIONS (3)
  - Pyrexia [None]
  - Mucous stools [None]
  - Haematochezia [None]
